FAERS Safety Report 17718343 (Version 2)
Quarter: 2020Q4

REPORT INFORMATION
  Report Type: Spontaneous
  Country: DE (occurrence: DE)
  Receive Date: 20200428
  Receipt Date: 20201105
  Transmission Date: 20210113
  Serious: Yes (Hospitalization, Other)
  Sender: FDA-Public Use
  Company Number: DE-TEVA-2020-DE-1227025

PATIENT
  Age: 81 Year
  Sex: Male
  Weight: 120 kg

DRUGS (11)
  1. APIXABAN [Interacting]
     Active Substance: APIXABAN
     Dosage: 2.5 MILLIGRAM DAILY;
     Route: 048
  2. TORASEMID [Suspect]
     Active Substance: TORSEMIDE
     Dosage: 50 MILLIGRAM DAILY;
     Route: 048
  3. COLECALCIFEROL (VITAMIN D) [Concomitant]
     Dosage: 1000 IU (INTERNATIONAL UNIT) DAILY;
     Route: 048
  4. OXYCODON [Concomitant]
     Active Substance: OXYCODONE
     Dosage: 60 MILLIGRAM DAILY;
     Route: 048
  5. TIOTROPIUMBROMID [Concomitant]
     Dosage: 18 MICROGRAM DAILY;
     Route: 055
  6. METAMIZOL [Concomitant]
     Active Substance: METAMIZOLE SODIUM
     Dosage: 500 MG, NEED, DROPS
     Route: 048
  7. FORMOTEROL [Concomitant]
     Active Substance: FORMOTEROL
     Dosage: 24 MICROGRAM DAILY;
     Route: 055
  8. PANTOPRAZOL [Concomitant]
     Active Substance: PANTOPRAZOLE SODIUM
     Dosage: 40 MILLIGRAM DAILY;
     Route: 048
  9. XIPAMID [Interacting]
     Active Substance: XIPAMIDE
     Dosage: 20 MILLIGRAM DAILY;
     Route: 048
  10. ALLOPURINOL. [Concomitant]
     Active Substance: ALLOPURINOL
     Dosage: 300 MG, REQUIREMENT
     Route: 048
  11. KALIUMCITRAT [Interacting]
     Active Substance: POTASSIUM CITRATE
     Dosage: 2157.3 MILLIGRAM DAILY;
     Route: 048

REACTIONS (6)
  - Therapeutic drug monitoring analysis not performed [Unknown]
  - Skin ulcer [Unknown]
  - Labelled drug-drug interaction medication error [Unknown]
  - Urogenital haemorrhage [Unknown]
  - Anaemia [Unknown]
  - Product monitoring error [Unknown]
